FAERS Safety Report 12921090 (Version 5)
Quarter: 2018Q1

REPORT INFORMATION
  Report Type: Report from Study
  Country: GB (occurrence: GB)
  Receive Date: 20161107
  Receipt Date: 20180122
  Transmission Date: 20180508
  Serious: Yes (Life-Threatening, Hospitalization)
  Sender: FDA-Public Use
  Company Number: GB-CELGENEUS-GBR-2016107369

PATIENT
  Age: 71 Year
  Sex: Male
  Weight: 80.2 kg

DRUGS (9)
  1. LANSOPRAZOLE. [Concomitant]
     Active Substance: LANSOPRAZOLE
     Indication: ANTACID THERAPY
     Dosage: 15 MILLIGRAM
     Route: 048
  2. PREDNISOLONE. [Concomitant]
     Active Substance: PREDNISOLONE
     Indication: PRODUCT USED FOR UNKNOWN INDICATION
     Dosage: 20 MILLIGRAM
     Route: 048
     Dates: start: 20161029
  3. ABRAXANE [Suspect]
     Active Substance: PACLITAXEL
     Indication: PANCREATIC CARCINOMA
     Dosage: 98.522MG/MSQ?125MG/M2
     Route: 041
     Dates: start: 20160831
  4. GEMCITABINE [Suspect]
     Active Substance: GEMCITABINE\GEMCITABINE HYDROCHLORIDE
     Indication: PANCREATIC CARCINOMA
     Dosage: 788.1773MG/MSQ?1000MG/M2
     Route: 041
     Dates: start: 20160831
  5. AMLODIPINE [Concomitant]
     Active Substance: AMLODIPINE BESYLATE
     Indication: HYPERTENSION
     Dosage: 5 MILLIGRAM
     Route: 048
     Dates: end: 20160124
  6. ALLOPURINOL. [Concomitant]
     Active Substance: ALLOPURINOL
     Indication: GOUT
     Dosage: 30 MILLIGRAM
     Route: 048
  7. COLECALCIFEROL AND CALCIUM CARBONATE [Concomitant]
     Indication: VITAMIN SUPPLEMENTATION
     Dosage: 2 TABLET
     Route: 048
     Dates: start: 20161031
  8. OXYCODONE [Concomitant]
     Active Substance: OXYCODONE
     Indication: ANALGESIC THERAPY
     Dosage: 20 MILLIGRAM
     Route: 048
     Dates: start: 20160824
  9. TRETINOIN. [Suspect]
     Active Substance: TRETINOIN
     Indication: PANCREATIC CARCINOMA
     Dosage: 45MG/M2
     Route: 048
     Dates: start: 20160831

REACTIONS (2)
  - Pneumonitis [Not Recovered/Not Resolved]
  - Pulmonary embolism [Recovered/Resolved with Sequelae]

NARRATIVE: CASE EVENT DATE: 20161024
